FAERS Safety Report 12830582 (Version 2)
Quarter: 2016Q4

REPORT INFORMATION
  Report Type: Spontaneous
  Country: JP (occurrence: JP)
  Receive Date: 20161007
  Receipt Date: 20161028
  Transmission Date: 20170207
  Serious: Yes (Other)
  Sender: FDA-Public Use
  Company Number: JP-MYLANLABS-2016M1042694

PATIENT

DRUGS (6)
  1. DOXORUBICIN [Suspect]
     Active Substance: DOXORUBICIN
     Indication: ALVEOLAR SOFT PART SARCOMA METASTATIC
     Dosage: 30 MG, QD
     Route: 065
  2. ETOPOSIDE. [Suspect]
     Active Substance: ETOPOSIDE
     Indication: ALVEOLAR SOFT PART SARCOMA METASTATIC
     Route: 065
  3. DACARBAZINE. [Suspect]
     Active Substance: DACARBAZINE
     Indication: ALVEOLAR SOFT PART SARCOMA METASTATIC
     Dosage: 400 MG, QD
     Route: 065
  4. IFOSFAMIDE. [Suspect]
     Active Substance: IFOSFAMIDE
     Dosage: UNK
     Route: 065
  5. CISPLATIN MARUKO [Suspect]
     Active Substance: CISPLATIN
     Indication: ALVEOLAR SOFT PART SARCOMA METASTATIC
     Route: 065
  6. IFOSFAMIDE. [Suspect]
     Active Substance: IFOSFAMIDE
     Indication: ALVEOLAR SOFT PART SARCOMA METASTATIC
     Dosage: 3000 MG, QD
     Route: 065

REACTIONS (4)
  - Renal impairment [Unknown]
  - Nausea [Unknown]
  - Vomiting [Unknown]
  - Diarrhoea [Unknown]
